FAERS Safety Report 5624090-3 (Version None)
Quarter: 2008Q1

REPORT INFORMATION
  Report Type: 
  Country: None (occurrence: None)
  Receive Date: 20080213
  Receipt Date: 20070710
  Transmission Date: 20080703
  Serious: No
  Sender: FDA-Public Use
  Company Number: US-KINGPHARMUSA00001-K200700885

PATIENT

DRUGS (1)
  1. EPIPEN JR. [Suspect]
     Dosage: UNK, SINGLE

REACTIONS (2)
  - ACCIDENTAL NEEDLE STICK [None]
  - ANXIETY [None]
